FAERS Safety Report 7788868-2 (Version None)
Quarter: 2011Q3

REPORT INFORMATION
  Report Type: 
  Country: None (occurrence: None)
  Receive Date: 20110930
  Receipt Date: 20110922
  Transmission Date: 20111222
  Serious: Yes (Death)
  Sender: FDA-Public Use
  Company Number: NL-ROCHE-797612

PATIENT
  Sex: Male

DRUGS (6)
  1. PACLITAXEL [Suspect]
     Dosage: LAST DOSE PRIOR TO SAE: 02 MAY 2011
     Route: 042
  2. CARBOPLATIN [Suspect]
     Dosage: LAST DOSE PRIOR TO SAE: 02 MAY 2011
     Route: 042
  3. PACLITAXEL [Suspect]
     Indication: NON-SMALL CELL LUNG CANCER
     Route: 042
  4. AVASTIN [Suspect]
     Dosage: LAST DOSE PRIOR TO SAE:27 JULY 2011
     Route: 042
  5. AVASTIN [Suspect]
     Indication: NON-SMALL CELL LUNG CANCER
     Route: 042
  6. CARBOPLATIN [Suspect]
     Indication: NON-SMALL CELL LUNG CANCER
     Route: 042

REACTIONS (1)
  - METASTASES TO MENINGES [None]
